FAERS Safety Report 18277808 (Version 2)
Quarter: 2020Q4

REPORT INFORMATION
  Report Type: Report from Study
  Country: KR (occurrence: KR)
  Receive Date: 20200917
  Receipt Date: 20201020
  Transmission Date: 20210113
  Serious: Yes (Death, Hospitalization)
  Sender: FDA-Public Use
  Company Number: PHHO2017KR012515

PATIENT
  Age: 65 Year
  Sex: Male
  Weight: 42 kg

DRUGS (25)
  1. IBUPROFEN ARGININE [Concomitant]
     Active Substance: IBUPROFEN ARGININE
     Indication: BACK PAIN
     Dosage: 1 DF, PRN
     Route: 048
     Dates: start: 20170804, end: 20170817
  2. IRCODON [Concomitant]
     Active Substance: OXYCODONE HYDROCHLORIDE
     Indication: BACK PAIN
     Dosage: 5-15 MG PRN
     Route: 048
     Dates: start: 20170403, end: 20170906
  3. TRAMADOL. [Concomitant]
     Active Substance: TRAMADOL
     Indication: PAIN IN EXTREMITY
     Dosage: 50 MG, PRN
     Route: 048
     Dates: start: 20170828, end: 20170830
  4. LACTULOSE. [Concomitant]
     Active Substance: LACTULOSE
     Indication: CONSTIPATION
     Dosage: 1 PKG, PRN
     Route: 048
     Dates: start: 20170706, end: 20170907
  5. TRAMADOL. [Concomitant]
     Active Substance: TRAMADOL
     Indication: BACK PAIN
     Dosage: 1T PRN
     Route: 048
     Dates: start: 20170817, end: 20170827
  6. METOCLOPRAMIDE. [Concomitant]
     Active Substance: METOCLOPRAMIDE
     Indication: NAUSEA
     Dosage: 1 AMP, PRN
     Route: 042
     Dates: start: 20170818, end: 20170904
  7. MULTIVITAMINS [Concomitant]
     Active Substance: VITAMINS
     Indication: SUPPLEMENTATION THERAPY
     Dosage: 1 AMP, QD
     Route: 042
     Dates: start: 20170819
  8. AGIOCUR [Concomitant]
     Indication: CONSTIPATION
     Dosage: 6 G, PRN
     Route: 048
     Dates: start: 20170714, end: 20170825
  9. IRCODON [Concomitant]
     Active Substance: OXYCODONE HYDROCHLORIDE
     Indication: PAIN IN EXTREMITY
  10. MORPHINE SULFATE. [Concomitant]
     Active Substance: MORPHINE SULFATE
     Indication: BACK PAIN
     Dosage: 5 MG, PRN
     Route: 042
     Dates: start: 20170816, end: 20170916
  11. MORPHINE SULFATE. [Concomitant]
     Active Substance: MORPHINE SULFATE
     Indication: PAIN IN EXTREMITY
  12. ENCOVER [Concomitant]
     Indication: SUPPLEMENTATION THERAPY
     Dosage: 400 ML, QD
     Route: 042
     Dates: start: 20170828, end: 20170907
  13. OXYCODONE [Concomitant]
     Active Substance: OXYCODONE
     Indication: PAIN IN EXTREMITY
  14. PREGABALIN. [Concomitant]
     Active Substance: PREGABALIN
     Indication: PAIN IN EXTREMITY
     Dosage: 150 MG, BID
     Route: 048
     Dates: end: 20170906
  15. IBUPROFEN ARGININE [Concomitant]
     Active Substance: IBUPROFEN ARGININE
     Indication: PAIN IN EXTREMITY
  16. MEGESTROL [Concomitant]
     Active Substance: MEGESTROL
     Indication: DECREASED APPETITE
     Dosage: 20 ML, PRN
     Route: 048
     Dates: start: 20170728, end: 20170827
  17. TPN [Concomitant]
     Active Substance: AMINO ACIDS\DEXTROSE\ELECTROLYTES NOS\SOYBEAN OIL
     Indication: SUPPLEMENTATION THERAPY
     Dosage: 1256.2 ML, IVS,PRN
     Route: 042
     Dates: start: 20170819, end: 20170826
  18. PROAMIN [Concomitant]
     Indication: SUPPLEMENTATION THERAPY
     Dosage: 1 BTL, QD
     Route: 042
     Dates: start: 20170819
  19. DUROGESIC [Concomitant]
     Active Substance: FENTANYL
     Indication: BACK PAIN
     Dosage: 12-25 MCG, PRN
     Route: 061
     Dates: start: 20170803, end: 20170917
  20. PREGABALIN. [Concomitant]
     Active Substance: PREGABALIN
     Indication: BACK PAIN
     Dosage: 75 MG, BID
     Route: 048
     Dates: start: 20170722, end: 20170829
  21. GLYCERIN. [Concomitant]
     Active Substance: GLYCERIN
     Indication: CONSTIPATION
     Dosage: SUPPO, PRN
     Route: 065
     Dates: start: 20170826, end: 20170826
  22. OXYCODONE [Concomitant]
     Active Substance: OXYCODONE
     Indication: BACK PAIN
     Dosage: 10-40 MG, PRN
     Route: 048
     Dates: start: 20170404, end: 20170907
  23. DUROGESIC [Concomitant]
     Active Substance: FENTANYL
     Indication: PAIN IN EXTREMITY
  24. CAPMATINIB [Suspect]
     Active Substance: CAPMATINIB
     Indication: NON-SMALL CELL LUNG CANCER
     Dosage: 400 MG, BID
     Route: 048
     Dates: start: 20170817, end: 20170908
  25. DEXAMETHASON [Concomitant]
     Active Substance: DEXAMETHASONE
     Indication: RADIOTHERAPY
     Dosage: UNK
     Route: 065
     Dates: start: 20170714, end: 20170726

REACTIONS (1)
  - Pneumonitis [Fatal]

NARRATIVE: CASE EVENT DATE: 20170821
